FAERS Safety Report 24617262 (Version 1)
Quarter: 2024Q4

REPORT INFORMATION
  Report Type: Report from Study
  Country: US (occurrence: US)
  Receive Date: 20241114
  Receipt Date: 20241114
  Transmission Date: 20250114
  Serious: Yes (Death)
  Sender: AMNEAL
  Company Number: US-AMNEAL PHARMACEUTICALS-2024-AMRX-03432

PATIENT
  Age: 72 Year
  Sex: Male
  Weight: 122.45 kg

DRUGS (2)
  1. FYLNETRA [Suspect]
     Active Substance: PEGFILGRASTIM-PBBK
     Indication: Agranulocytosis
     Dosage: 6 MILLIGRAM, EVERY 3 WEEKS
     Route: 042
  2. FYLNETRA [Suspect]
     Active Substance: PEGFILGRASTIM-PBBK
     Dosage: 6 MILLIGRAM SQ Q, EVERY 3 WEEKS
     Route: 058

REACTIONS (2)
  - Death [Fatal]
  - Weight decreased [Unknown]

NARRATIVE: CASE EVENT DATE: 20240913
